FAERS Safety Report 6595909-7 (Version None)
Quarter: 2010Q1

REPORT INFORMATION
  Report Type: 
  Country: None (occurrence: None)
  Receive Date: 20100219
  Receipt Date: 20100219
  Transmission Date: 20100710
  Serious: Yes (Other)
  Sender: FDA-Public Use
  Company Number: None

PATIENT
  Age: 37 Year
  Sex: Female
  Weight: 84.8226 kg

DRUGS (1)
  1. REMICADE [Suspect]
     Indication: CROHN'S DISEASE
     Dosage: 5MG/12Q- 400MG Q8WKS IV SEE DESCRIPTION
     Route: 042
     Dates: start: 20040101, end: 20090101

REACTIONS (2)
  - ANAL FISTULA [None]
  - LIPOSARCOMA [None]
